FAERS Safety Report 8820708 (Version 2)
Quarter: 2012Q4

REPORT INFORMATION
  Report Type: 
  Country: US (occurrence: US)
  Receive Date: 20121002
  Receipt Date: 20121023
  Transmission Date: 20130627
  Serious: Yes (Other)
  Sender: FDA-Public Use
  Company Number: PHEH2012US018759

PATIENT
  Age: 57 Year
  Sex: Male

DRUGS (3)
  1. GILENYA [Suspect]
     Indication: MULTIPLE SCLEROSIS
     Dosage: 0.5 mg, QD
     Route: 048
     Dates: start: 201202, end: 20120925
  2. BACLOFEN [Concomitant]
     Dosage: 10 mg, QD
  3. FAMPRIDINE [Concomitant]
     Dosage: 2 DF, QD

REACTIONS (9)
  - Uveitis [Not Recovered/Not Resolved]
  - Eye infection [Not Recovered/Not Resolved]
  - Ocular hyperaemia [Not Recovered/Not Resolved]
  - Vision blurred [Not Recovered/Not Resolved]
  - Eye pain [Not Recovered/Not Resolved]
  - Eye swelling [Not Recovered/Not Resolved]
  - Photophobia [Not Recovered/Not Resolved]
  - Eye inflammation [Unknown]
  - Eye disorder [Unknown]
